FAERS Safety Report 12389830 (Version 5)
Quarter: 2016Q2

REPORT INFORMATION
  Report Type: Spontaneous
  Country: US (occurrence: US)
  Receive Date: 20160520
  Receipt Date: 20160628
  Transmission Date: 20160815
  Serious: Yes (Hospitalization)
  Sender: FDA-Public Use
  Company Number: US-ACTELION-A-US2016-136516

PATIENT
  Age: 63 Year
  Sex: Female

DRUGS (10)
  1. MORPHINE [Concomitant]
     Active Substance: MORPHINE
  2. ABILIFY [Concomitant]
     Active Substance: ARIPIPRAZOLE
  3. ALBUTEROL. [Concomitant]
     Active Substance: ALBUTEROL
  4. MIRTAZAPIN [Concomitant]
     Active Substance: MIRTAZAPINE
  5. CARVEDILOL. [Concomitant]
     Active Substance: CARVEDILOL
  6. NORVASC [Concomitant]
     Active Substance: AMLODIPINE BESYLATE
  7. ADCIRCA [Concomitant]
     Active Substance: TADALAFIL
  8. LASIX [Concomitant]
     Active Substance: FUROSEMIDE
  9. METRONIDAZOLE. [Concomitant]
     Active Substance: METRONIDAZOLE
  10. OPSUMIT [Suspect]
     Active Substance: MACITENTAN
     Indication: PULMONARY ARTERIAL HYPERTENSION
     Dosage: 10 MG, QD
     Route: 048
     Dates: start: 20160425, end: 20160519

REACTIONS (9)
  - Fluid overload [Not Recovered/Not Resolved]
  - Cor pulmonale chronic [Unknown]
  - Cardiac disorder [Not Recovered/Not Resolved]
  - Unevaluable event [Unknown]
  - Vomiting [Recovered/Resolved]
  - No therapeutic response [Recovered/Resolved]
  - Dyspnoea [Unknown]
  - Decreased appetite [Not Recovered/Not Resolved]
  - Respiratory failure [Not Recovered/Not Resolved]

NARRATIVE: CASE EVENT DATE: 20160425
